FAERS Safety Report 9913026 (Version 1)
Quarter: 2014Q1

REPORT INFORMATION
  Report Type: Spontaneous
  Country: US (occurrence: None)
  Receive Date: 20140218
  Receipt Date: 20140218
  Transmission Date: 20141002
  Serious: No
  Sender: FDA-Public Use
  Company Number: None

PATIENT
  Age: 68 Year
  Sex: Male
  Weight: 95.26 kg

DRUGS (1)
  1. RANEXA 500 MG GILEAD [Suspect]
     Indication: ANGINA PECTORIS
     Route: 048

REACTIONS (3)
  - Blood urine present [None]
  - Fatigue [None]
  - Feeling abnormal [None]
